FAERS Safety Report 18206861 (Version 1)
Quarter: 2020Q3

REPORT INFORMATION
  Report Type: Spontaneous
  Country: AU (occurrence: AU)
  Receive Date: 20200828
  Receipt Date: 20200828
  Transmission Date: 20201103
  Serious: Yes (Other)
  Sender: FDA-Public Use
  Company Number: AU-ALKEM LABORATORIES LIMITED-AU-ALKEM-2020-05214

PATIENT
  Age: 75 Year
  Sex: Male

DRUGS (2)
  1. OLMESARTAN [Suspect]
     Active Substance: OLMESARTAN
     Indication: PRODUCT USED FOR UNKNOWN INDICATION
     Dosage: UNK
     Route: 065
  2. HYDREA [Suspect]
     Active Substance: HYDROXYUREA
     Indication: PRODUCT USED FOR UNKNOWN INDICATION
     Dosage: UNK
     Route: 065

REACTIONS (41)
  - Retroperitoneal neoplasm [Unknown]
  - Anaemia [Unknown]
  - Aortic valve calcification [Unknown]
  - Blood luteinising hormone increased [Unknown]
  - Light chain analysis increased [Unknown]
  - Obstructive airways disorder [Unknown]
  - Aortic stenosis [Unknown]
  - Bone marrow failure [Unknown]
  - Erdheim-Chester disease [Unknown]
  - Lymphoma [Unknown]
  - Blood testosterone decreased [Unknown]
  - Cardiac murmur [Unknown]
  - Fat necrosis [Unknown]
  - Enchondromatosis [Unknown]
  - Blood thyroid stimulating hormone increased [Unknown]
  - BRAF V600E mutation positive [Unknown]
  - Dyspnoea [Unknown]
  - Oedema [Unknown]
  - Oedema peripheral [Unknown]
  - Adrenal gland cancer [Unknown]
  - Myeloproliferative neoplasm [Unknown]
  - Histiocytosis [Unknown]
  - Multiple sclerosis [Unknown]
  - Blood parathyroid hormone increased [Unknown]
  - Polycythaemia [Unknown]
  - Epididymitis [Unknown]
  - Renal cancer metastatic [Unknown]
  - Albumin urine [Unknown]
  - Anti-thyroid antibody positive [Unknown]
  - Blood albumin decreased [Unknown]
  - Blood calcium decreased [Unknown]
  - Cough [Unknown]
  - Haemoglobin decreased [Unknown]
  - Marrow hyperplasia [Unknown]
  - Platelet count increased [Unknown]
  - Autoimmune thyroiditis [Unknown]
  - Heart sounds abnormal [Unknown]
  - Kidney enlargement [Unknown]
  - Pulmonary mass [Unknown]
  - Blood pressure abnormal [Unknown]
  - Rales [Unknown]
